FAERS Safety Report 7331660-3 (Version None)
Quarter: 2011Q1

REPORT INFORMATION
  Report Type: 
  Country: None (occurrence: None)
  Receive Date: 20110304
  Receipt Date: 20110223
  Transmission Date: 20110831
  Serious: Yes (Hospitalization)
  Sender: FDA-Public Use
  Company Number: US-JNJFOC-20110300421

PATIENT
  Age: 45 Year
  Sex: Female
  Weight: 79.7 kg

DRUGS (8)
  1. PROTONIX [Concomitant]
  2. TRAZODONE [Concomitant]
  3. VISTARIL [Concomitant]
  4. TYLENOL PM [Suspect]
     Indication: PRODUCT USED FOR UNKNOWN INDICATION
     Route: 048
  5. IBUPROFEN [Concomitant]
  6. FISH OIL [Concomitant]
  7. SYNTHROID [Concomitant]
  8. METFORMIN [Concomitant]

REACTIONS (5)
  - INTENTIONAL SELF-INJURY [None]
  - VOMITING [None]
  - ABDOMINAL PAIN [None]
  - INTENTIONAL OVERDOSE [None]
  - HEPATIC ENZYME INCREASED [None]
